FAERS Safety Report 25899465 (Version 1)
Quarter: 2025Q4

REPORT INFORMATION
  Report Type: Spontaneous
  Country: ZA (occurrence: ZA)
  Receive Date: 20251009
  Receipt Date: 20251009
  Transmission Date: 20260118
  Serious: Yes (Other)
  Sender: ROCHE
  Company Number: ZA-ROCHE-10000401988

PATIENT
  Sex: Female

DRUGS (1)
  1. ACTEMRA [Suspect]
     Active Substance: TOCILIZUMAB
     Indication: Product used for unknown indication
     Route: 065
     Dates: start: 202506, end: 202509

REACTIONS (4)
  - Neutropenia [Unknown]
  - Toxicity to various agents [Unknown]
  - Drug ineffective [Unknown]
  - Hypertransaminasaemia [Unknown]
